FAERS Safety Report 7438838-9 (Version None)
Quarter: 2011Q2

REPORT INFORMATION
  Report Type: 
  Country: None (occurrence: None)
  Receive Date: 20110426
  Receipt Date: 20110421
  Transmission Date: 20111010
  Serious: Yes (Death)
  Sender: FDA-Public Use
  Company Number: US-GILEAD-2011-0038404

PATIENT
  Age: 79 Year
  Sex: Female

DRUGS (23)
  1. NORTREL 7/7/7 [Concomitant]
  2. SODIUM CHLORIDE [Concomitant]
  3. IRON SUCROSE [Concomitant]
  4. CYANOCOBALAMIN [Concomitant]
  5. REVATIO [Concomitant]
  6. BUMEX [Concomitant]
  7. OMEPRAZOLE [Concomitant]
  8. POTASSIUM CHLORIDE [Concomitant]
  9. CLONAZEPAM [Concomitant]
  10. LETAIRIS [Suspect]
     Dates: start: 20101201, end: 20110202
  11. DIGOXIN [Concomitant]
  12. ATENOLOL [Concomitant]
  13. OXYGEN [Concomitant]
  14. BONIVA [Concomitant]
  15. LOVAZA [Concomitant]
  16. ARANESP [Concomitant]
  17. OSCAL [Concomitant]
  18. CENTRUM SILVER [Concomitant]
  19. SPIRONOLACTONE [Concomitant]
  20. LETAIRIS [Suspect]
     Indication: PULMONARY ARTERIAL HYPERTENSION
     Route: 048
     Dates: start: 20110201
  21. TYVASO [Concomitant]
  22. TOPROL-XL [Concomitant]
  23. FOLIC ACID [Concomitant]

REACTIONS (1)
  - DEATH [None]
